FAERS Safety Report 21213001 (Version 1)
Quarter: 2022Q3

REPORT INFORMATION
  Report Type: Spontaneous
  Country: TH (occurrence: TH)
  Receive Date: 20220815
  Receipt Date: 20220815
  Transmission Date: 20221026
  Serious: Yes (Other)
  Sender: FDA-Public Use
  Company Number: TH-SAOL THERAPEUTICS-2022KAM00198

PATIENT

DRUGS (2)
  1. HEPATITIS B IMMUNE GLOBULIN [Suspect]
     Active Substance: HUMAN HEPATITIS B VIRUS IMMUNE GLOBULIN
     Indication: Prophylaxis
     Dosage: UNK
     Route: 065
  2. HEPATITIS B VIRUS VACCINE [Suspect]
     Active Substance: HEPATITIS B VIRUS VACCINE
     Indication: Prophylaxis
     Dosage: RECEIVED AT BIRTH AND AT AGES 1,2,4 AND 6 MONTHS
     Route: 065

REACTIONS (1)
  - Treatment failure [Unknown]
